FAERS Safety Report 7478244-4 (Version None)
Quarter: 2011Q2

REPORT INFORMATION
  Report Type: 
  Country: None (occurrence: None)
  Receive Date: 20110513
  Receipt Date: 20110506
  Transmission Date: 20111010
  Serious: Yes (Death, Hospitalization, Other)
  Sender: FDA-Public Use
  Company Number: PHHY2011US22064

PATIENT
  Sex: Male
  Weight: 64.2 kg

DRUGS (13)
  1. DEMADEX [Concomitant]
     Dosage: 20 MG, DAILY
  2. EXFORGE [Concomitant]
     Dosage: 10 MG/160 MG DAILY
  3. MIRALAX [Concomitant]
     Dosage: 17 G,DAILY
  4. ZOVIRAX [Concomitant]
     Indication: RASH
     Dosage: 5 %, DAILY
  5. VIDAZA [Suspect]
  6. TIMOPTIC [Concomitant]
     Dosage: 0.5 %, BID
  7. COLACE [Concomitant]
     Dosage: 100 MG, QD
     Route: 048
  8. VALTREX [Concomitant]
  9. ADVAIR DISKUS 100/50 [Concomitant]
     Dosage: 250/50 ONE PUFF DAILY
  10. ALPHAGAN P [Concomitant]
     Dosage: 0.15 %, BID
  11. PRAVACHOL [Concomitant]
     Dosage: 40 MG, QHS
  12. TRAVATAN [Concomitant]
     Dosage: 0.004 %, QHS
  13. EXJADE [Suspect]
     Indication: MYELODYSPLASTIC SYNDROME
     Dosage: 1500 MG, QD
     Route: 048
     Dates: start: 20100324

REACTIONS (35)
  - THROMBOCYTOPENIA [None]
  - BRONCHITIS CHRONIC [None]
  - FEELING ABNORMAL [None]
  - BODY TEMPERATURE INCREASED [None]
  - NEOPLASM MALIGNANT [None]
  - LOBAR PNEUMONIA [None]
  - NECK PAIN [None]
  - MOUTH HAEMORRHAGE [None]
  - DEPRESSION [None]
  - CONFUSIONAL STATE [None]
  - ANGER [None]
  - ECCHYMOSIS [None]
  - HAEMATOMA [None]
  - INSOMNIA [None]
  - ACUTE MYELOID LEUKAEMIA [None]
  - PANCYTOPENIA [None]
  - CRYING [None]
  - ORAL DISORDER [None]
  - JOINT SPRAIN [None]
  - DEHYDRATION [None]
  - CONTUSION [None]
  - ASTHENIA [None]
  - PAIN IN EXTREMITY [None]
  - FALL [None]
  - EXCORIATION [None]
  - DYSLIPIDAEMIA [None]
  - FRUSTRATION [None]
  - FATIGUE [None]
  - GINGIVAL BLEEDING [None]
  - BACK PAIN [None]
  - ARTERIOSCLEROSIS [None]
  - AGITATION [None]
  - IRRITABILITY [None]
  - SKIN LESION [None]
  - SPEECH DISORDER [None]
